FAERS Safety Report 9879593 (Version 3)
Quarter: 2014Q2

REPORT INFORMATION
  Report Type: Spontaneous
  Country: US (occurrence: US)
  Receive Date: 20140206
  Receipt Date: 20140408
  Transmission Date: 20141212
  Serious: Yes (Hospitalization, Other)
  Sender: FDA-Public Use
  Company Number: US-ELI_LILLY_AND_COMPANY-US201402000182

PATIENT
  Sex: Male

DRUGS (5)
  1. HUMALOG LISPRO [Suspect]
     Indication: TYPE 2 DIABETES MELLITUS
     Dosage: 10 U, BEFORE EACH MEAL
     Route: 065
     Dates: start: 201306
  2. NOVOLOG [Concomitant]
  3. LANTUS [Concomitant]
     Dosage: 28 DF, EACH MORNING
  4. LANTUS [Concomitant]
     Dosage: 34 DF, EACH EVENING
  5. TYLENOL W/CODEINE [Concomitant]
     Dosage: UNK, PRN

REACTIONS (6)
  - Pancreatic carcinoma metastatic [Not Recovered/Not Resolved]
  - Dyspnoea [Unknown]
  - Abasia [Unknown]
  - Hypophagia [Unknown]
  - Injection site pain [Unknown]
  - Incorrect dose administered [Unknown]
